FAERS Safety Report 4684804-6 (Version None)
Quarter: 2005Q2

REPORT INFORMATION
  Report Type: 
  Country: None (occurrence: None)
  Receive Date: 20050606
  Receipt Date: 20050209
  Transmission Date: 20051028
  Serious: No
  Sender: FDA-Public Use
  Company Number: USA050290333

PATIENT
  Sex: Female

DRUGS (1)
  1. ALIMTA [Suspect]

REACTIONS (2)
  - BALANCE DISORDER [None]
  - GAIT DISTURBANCE [None]
